FAERS Safety Report 10366151 (Version 1)
Quarter: 2014Q1

REPORT INFORMATION
  Report Type: Spontaneous
  Country: US (occurrence: None)
  Receive Date: 20140306
  Receipt Date: 20140306
  Transmission Date: 20141002
  Serious: Yes (Hospitalization, Other)
  Sender: FDA-Public Use
  Company Number: 163-21880-13031021

PATIENT
  Age: 81 Year
  Sex: Female

DRUGS (9)
  1. REVLIMID [Suspect]
     Indication: PLASMA CELL MYELOMA
     Route: 048
     Dates: start: 200911
  2. AYCLOVIR (ACICLOVIR) [Concomitant]
  3. ALPHA LIPOIC ACID (THIOCTIC ACID) [Concomitant]
  4. GABAPENTIN (GABAPENTIN) [Concomitant]
  5. MEDROL (METHYLPREDNISOLONE) [Concomitant]
  6. MULTIVITAMINS (MULTIVITAMINS) [Concomitant]
  7. POTASSIUM BICARBONATE (POTASSIUM BICARBONATE) [Concomitant]
  8. TRIAMETENE HCTZ (DYAZIDE) [Concomitant]
  9. VITAMIN D (ERGOCALCIFEROL) [Concomitant]

REACTIONS (2)
  - Fall [None]
  - Infection [None]
